FAERS Safety Report 10922313 (Version 2)
Quarter: 2015Q3

REPORT INFORMATION
  Report Type: Spontaneous
  Country: US (occurrence: US)
  Receive Date: 20150317
  Receipt Date: 20150716
  Transmission Date: 20151125
  Serious: Yes (Death, Other)
  Sender: FDA-Public Use
  Company Number: US-TEVA-547509USA

PATIENT
  Age: 2 Year
  Sex: Female

DRUGS (3)
  1. OXYCODONE [Suspect]
     Active Substance: OXYCODONE
     Route: 065
  2. SUBOXONE [Suspect]
     Active Substance: BUPRENORPHINE HYDROCHLORIDE\NALOXONE HYDROCHLORIDE
     Route: 065
  3. BUPRENORPHINE. [Suspect]
     Active Substance: BUPRENORPHINE
     Route: 065

REACTIONS (10)
  - Accidental overdose [Fatal]
  - Accidental exposure to product by child [Fatal]
  - Cyanosis [Unknown]
  - Vomiting [Unknown]
  - Feeling cold [Unknown]
  - Toxicity to various agents [Fatal]
  - Drug administered to patient of inappropriate age [Unknown]
  - Unresponsive to stimuli [Unknown]
  - Muscle rigidity [Unknown]
  - Victim of homicide [Fatal]

NARRATIVE: CASE EVENT DATE: 201410
